FAERS Safety Report 24574343 (Version 2)
Quarter: 2024Q4

REPORT INFORMATION
  Report Type: Report from Study
  Country: KR (occurrence: KR)
  Receive Date: 20241104
  Receipt Date: 20241108
  Transmission Date: 20250115
  Serious: No
  Sender: ALEXION PHARMACEUTICALS
  Company Number: KR-AstraZeneca-2024A071403

PATIENT
  Age: 80 Year
  Weight: 69 kg

DRUGS (40)
  1. DURVALUMAB [Suspect]
     Active Substance: DURVALUMAB
     Indication: Non-small cell lung cancer
     Dosage: 730 MG
  2. DURVALUMAB [Suspect]
     Active Substance: DURVALUMAB
     Dosage: 730 MG
  3. DURVALUMAB [Suspect]
     Active Substance: DURVALUMAB
     Dosage: 730 MG
  4. DURVALUMAB [Suspect]
     Active Substance: DURVALUMAB
     Dosage: 730 MG
  5. DURVALUMAB [Suspect]
     Active Substance: DURVALUMAB
     Dosage: 720 MG
  6. DURVALUMAB [Suspect]
     Active Substance: DURVALUMAB
     Dosage: 720 MG
  7. DURVALUMAB [Suspect]
     Active Substance: DURVALUMAB
     Dosage: 720 MG
  8. DURVALUMAB [Suspect]
     Active Substance: DURVALUMAB
     Dosage: 720 MG
  9. DURVALUMAB [Suspect]
     Active Substance: DURVALUMAB
     Dosage: 730 MG
  10. DURVALUMAB [Suspect]
     Active Substance: DURVALUMAB
     Dosage: 730 MG
  11. DURVALUMAB [Suspect]
     Active Substance: DURVALUMAB
     Dosage: 730 MG
  12. DURVALUMAB [Suspect]
     Active Substance: DURVALUMAB
     Dosage: 730 MG
  13. DURVALUMAB [Suspect]
     Active Substance: DURVALUMAB
     Dosage: 720 MG
  14. DURVALUMAB [Suspect]
     Active Substance: DURVALUMAB
     Dosage: 720 MG
  15. DURVALUMAB [Suspect]
     Active Substance: DURVALUMAB
     Dosage: 720 MG
  16. DURVALUMAB [Suspect]
     Active Substance: DURVALUMAB
     Dosage: 720 MG
  17. DURVALUMAB [Suspect]
     Active Substance: DURVALUMAB
     Dosage: 750 MG
  18. DURVALUMAB [Suspect]
     Active Substance: DURVALUMAB
     Dosage: 750 MG
  19. DURVALUMAB [Suspect]
     Active Substance: DURVALUMAB
     Dosage: 750 MG
  20. DURVALUMAB [Suspect]
     Active Substance: DURVALUMAB
     Dosage: 750 MG
  21. DURVALUMAB [Suspect]
     Active Substance: DURVALUMAB
     Dosage: 730 MG
  22. DURVALUMAB [Suspect]
     Active Substance: DURVALUMAB
     Dosage: 730 MG
  23. DURVALUMAB [Suspect]
     Active Substance: DURVALUMAB
     Dosage: 730 MG
  24. DURVALUMAB [Suspect]
     Active Substance: DURVALUMAB
     Dosage: 730 MG
  25. DURVALUMAB [Suspect]
     Active Substance: DURVALUMAB
     Dosage: 720 MG
  26. DURVALUMAB [Suspect]
     Active Substance: DURVALUMAB
     Dosage: 720 MG
  27. DURVALUMAB [Suspect]
     Active Substance: DURVALUMAB
     Dosage: 720 MG
  28. DURVALUMAB [Suspect]
     Active Substance: DURVALUMAB
     Dosage: 720 MG
  29. DURVALUMAB [Suspect]
     Active Substance: DURVALUMAB
     Dosage: 730 MG
  30. DURVALUMAB [Suspect]
     Active Substance: DURVALUMAB
     Dosage: 730 MG
  31. DURVALUMAB [Suspect]
     Active Substance: DURVALUMAB
     Dosage: 730 MG
  32. DURVALUMAB [Suspect]
     Active Substance: DURVALUMAB
     Dosage: 730 MG
  33. DURVALUMAB [Suspect]
     Active Substance: DURVALUMAB
     Dosage: 732.6 MG
  34. DURVALUMAB [Suspect]
     Active Substance: DURVALUMAB
     Dosage: 732.6 MG
  35. DURVALUMAB [Suspect]
     Active Substance: DURVALUMAB
     Dosage: 732.6 MG
  36. DURVALUMAB [Suspect]
     Active Substance: DURVALUMAB
     Dosage: 732.6 MG
  37. DURVALUMAB [Suspect]
     Active Substance: DURVALUMAB
     Dosage: 730 MG
  38. DURVALUMAB [Suspect]
     Active Substance: DURVALUMAB
     Dosage: 730 MG
  39. DURVALUMAB [Suspect]
     Active Substance: DURVALUMAB
     Dosage: 730 MG
  40. DURVALUMAB [Suspect]
     Active Substance: DURVALUMAB
     Dosage: 730 MG

REACTIONS (1)
  - Electrocardiogram abnormal [Recovered/Resolved with Sequelae]
